FAERS Safety Report 10082881 (Version 1)
Quarter: 2014Q2

REPORT INFORMATION
  Report Type: Report from Study
  Country: JP (occurrence: JP)
  Receive Date: 20140416
  Receipt Date: 20140416
  Transmission Date: 20141212
  Serious: Yes (Hospitalization)
  Sender: FDA-Public Use
  Company Number: JP-TAKEDA-2014TJP004919

PATIENT
  Age: 68 Year
  Sex: Male

DRUGS (7)
  1. ALOGLIPTIN [Suspect]
     Indication: TYPE 2 DIABETES MELLITUS
     Dosage: 25 MG, QD
     Route: 048
     Dates: start: 20130222
  2. GLIMEPIRIDE [Concomitant]
     Indication: TYPE 2 DIABETES MELLITUS
     Dosage: 3 MG, 1 DAYS
     Route: 048
  3. MEDET [Concomitant]
     Indication: TYPE 2 DIABETES MELLITUS
     Dosage: 750 MG, 1 DAYS
     Route: 048
  4. EPADEL-S [Concomitant]
     Dosage: UNK
     Route: 048
  5. LIVALO [Concomitant]
     Dosage: UNK
     Route: 048
  6. OLMETEC [Concomitant]
     Dosage: UNK
     Route: 048
  7. RIBALL [Concomitant]
     Dosage: UNK
     Route: 048

REACTIONS (1)
  - Hepatitis cholestatic [Recovering/Resolving]
